FAERS Safety Report 7199114-5 (Version None)
Quarter: 2010Q4

REPORT INFORMATION
  Report Type: 
  Country: None (occurrence: None)
  Receive Date: 20101126
  Receipt Date: 20100406
  Transmission Date: 20110411
  Serious: Yes (Other)
  Sender: FDA-Public Use
  Company Number: CIP10000774

PATIENT
  Age: 73 Year
  Sex: Female

DRUGS (1)
  1. ACTONEL [Suspect]
     Dosage: ORAL
     Route: 048
     Dates: start: 20050805

REACTIONS (3)
  - FOOT FRACTURE [None]
  - HIP FRACTURE [None]
  - LOWER LIMB FRACTURE [None]
